FAERS Safety Report 6847746-3 (Version None)
Quarter: 2010Q3

REPORT INFORMATION
  Report Type: 
  Country: None (occurrence: None)
  Receive Date: 20100716
  Receipt Date: 20100709
  Transmission Date: 20110219
  Serious: Yes (Other)
  Sender: FDA-Public Use
  Company Number: US-SANOFI-AVENTIS-2010SA040944

PATIENT
  Age: 79 Year
  Sex: Male
  Weight: 102 kg

DRUGS (10)
  1. MULTAQ [Suspect]
     Route: 048
     Dates: start: 20091201
  2. XANAX [Concomitant]
  3. LOTREL [Concomitant]
  4. TYLENOL W/ CODEINE NO. 3 [Concomitant]
  5. LASIX [Concomitant]
  6. ALLOPURINOL [Concomitant]
  7. WARFARIN SODIUM [Concomitant]
  8. GLIPIZIDE [Concomitant]
  9. PAREGORIC [Concomitant]
  10. OMEPRAZOLE [Concomitant]

REACTIONS (3)
  - ATRIAL FIBRILLATION [None]
  - DIARRHOEA [None]
  - WEIGHT DECREASED [None]
